FAERS Safety Report 9688625 (Version 3)
Quarter: 2013Q4

REPORT INFORMATION
  Report Type: Spontaneous
  Country: GB (occurrence: GB)
  Receive Date: 20131114
  Receipt Date: 20131121
  Transmission Date: 20140711
  Serious: Yes (Hospitalization, Other)
  Sender: FDA-Public Use
  Company Number: GB-PFIZER INC-2013306838

PATIENT
  Age: 75 Year
  Sex: Female
  Weight: 108 kg

DRUGS (9)
  1. ZYVOX [Suspect]
     Indication: STAPHYLOCOCCAL INFECTION
     Dosage: 600 MG, 2X/DAY
     Route: 042
     Dates: start: 20131006, end: 20131010
  2. ZYVOX [Interacting]
     Indication: SKIN INFECTION
  3. RIVAROXABAN [Interacting]
     Indication: ANTICOAGULANT THERAPY
  4. RIVAROXABAN [Interacting]
     Indication: KNEE ARTHROPLASTY
  5. ASPIRIN [Concomitant]
     Indication: ANALGESIC THERAPY
     Dosage: 75 MG, 1X/DAY
     Route: 048
  6. PARACETAMOL [Concomitant]
     Indication: ANALGESIC THERAPY
     Dosage: 1000 MG, 4X/DAY (AS NEEDED)
     Route: 048
  7. SERETIDE 50 [Concomitant]
     Indication: ASTHMA
     Dosage: UNK
  8. DOXAZOSIN [Concomitant]
     Indication: HYPERTENSION
     Dosage: 4 MG, 1X/DAY
     Route: 048
  9. VERAPAMIL [Concomitant]
     Indication: HYPERTENSION
     Dosage: 240 MG, 1X/DAY
     Route: 048

REACTIONS (2)
  - Potentiating drug interaction [Recovered/Resolved]
  - Skin exfoliation [Recovered/Resolved]
